FAERS Safety Report 24964912 (Version 2)
Quarter: 2025Q1

REPORT INFORMATION
  Report Type: Report from Study
  Country: KR (occurrence: KR)
  Receive Date: 20250213
  Receipt Date: 20250311
  Transmission Date: 20250409
  Serious: Yes (Hospitalization, Other)
  Sender: JOHNSON AND JOHNSON
  Company Number: KR-JNJFOC-20220453706

PATIENT
  Age: 69 Year
  Sex: Female

DRUGS (3)
  1. MACITENTAN [Suspect]
     Active Substance: MACITENTAN
     Indication: Pulmonary arterial hypertension
     Route: 048
     Dates: start: 202201
  2. MACITENTAN [Suspect]
     Active Substance: MACITENTAN
     Route: 048
     Dates: start: 20250110
  3. CALCIUM [Concomitant]
     Active Substance: CALCIUM
     Dates: start: 202101

REACTIONS (44)
  - Insomnia [Not Recovered/Not Resolved]
  - Dyspnoea [Not Recovered/Not Resolved]
  - Hyperthyroidism [Not Recovered/Not Resolved]
  - Heart rate increased [Unknown]
  - Cholesteatoma [Unknown]
  - Cataract [Unknown]
  - Palpitations [Not Recovered/Not Resolved]
  - Deafness unilateral [Unknown]
  - Face oedema [Recovered/Resolved]
  - Dyspnoea exertional [Not Recovered/Not Resolved]
  - Joint range of motion decreased [Unknown]
  - Decreased appetite [Not Recovered/Not Resolved]
  - Osteoarthritis [Recovered/Resolved]
  - Headache [Not Recovered/Not Resolved]
  - Hyperhidrosis [Not Recovered/Not Resolved]
  - Dizziness [Recovering/Resolving]
  - Treatment noncompliance [Unknown]
  - Vision blurred [Unknown]
  - Memory impairment [Unknown]
  - Pruritus [Unknown]
  - Weight decreased [Unknown]
  - Frustration tolerance decreased [Unknown]
  - Oesophagitis [Unknown]
  - Nasopharyngitis [Unknown]
  - Throat tightness [Unknown]
  - Asthenia [Unknown]
  - Neck pain [Not Recovered/Not Resolved]
  - Discomfort [Recovering/Resolving]
  - Wrong product administered [Unknown]
  - Procedural pain [Unknown]
  - Eye swelling [Unknown]
  - Hypersomnia [Unknown]
  - Fatigue [Unknown]
  - Joint swelling [Recovering/Resolving]
  - Gait disturbance [Unknown]
  - Feeling abnormal [Unknown]
  - Decreased activity [Unknown]
  - Nocturnal dyspnoea [Unknown]
  - Pain [Unknown]
  - Pain in extremity [Unknown]
  - Dyschezia [Unknown]
  - Arthralgia [Not Recovered/Not Resolved]
  - Facial pain [Unknown]
  - Middle insomnia [Unknown]

NARRATIVE: CASE EVENT DATE: 20220101
